FAERS Safety Report 9322163 (Version 1)
Quarter: 2013Q2

REPORT INFORMATION
  Report Type: Spontaneous
  Country: US (occurrence: US)
  Receive Date: 20130531
  Receipt Date: 20130531
  Transmission Date: 20140414
  Serious: Yes (Hospitalization)
  Sender: FDA-Public Use
  Company Number: US-GLAXOSMITHKLINE-A0405744A

PATIENT
  Age: 65 Year
  Sex: Male
  Weight: 117.3 kg

DRUGS (6)
  1. AVANDIA [Suspect]
     Indication: TYPE 2 DIABETES MELLITUS
     Dosage: 4MG TWICE PER DAY
     Route: 048
     Dates: start: 200210
  2. GLUCOVANCE [Concomitant]
     Route: 048
  3. NORVASC [Concomitant]
     Route: 048
  4. ENALAPRIL [Concomitant]
     Route: 048
  5. ATENOLOL [Concomitant]
     Route: 048
  6. TRICOR [Concomitant]

REACTIONS (7)
  - Myocardial infarction [Unknown]
  - Muscle spasms [Recovered/Resolved]
  - Local swelling [Recovered/Resolved]
  - Weight increased [Recovered/Resolved]
  - Fatigue [Not Recovered/Not Resolved]
  - Urine analysis abnormal [Not Recovered/Not Resolved]
  - Local swelling [Not Recovered/Not Resolved]
